FAERS Safety Report 11358915 (Version 1)
Quarter: 2015Q3

REPORT INFORMATION
  Report Type: Spontaneous
  Country: US (occurrence: US)
  Receive Date: 20150807
  Receipt Date: 20150807
  Transmission Date: 20151125
  Serious: Yes (Other)
  Sender: FDA-Public Use
  Company Number: US-TEVA-583581USA

PATIENT
  Sex: Male
  Weight: 90.8 kg

DRUGS (13)
  1. POTASSIUM CHLORIDE. [Concomitant]
     Active Substance: POTASSIUM CHLORIDE
  2. SAW PALMETTO [Concomitant]
     Active Substance: SAW PALMETTO
  3. CARBIDOPA W/LEVODOPA [Concomitant]
     Active Substance: CARBIDOPA\LEVODOPA
  4. CITALOPRAM [Concomitant]
     Active Substance: CITALOPRAM HYDROBROMIDE
  5. LOSARTAN POTASSIUM W/HYDROCHLOROTHIAZIDE [Concomitant]
     Active Substance: HYDROCHLOROTHIAZIDE\LOSARTAN POTASSIUM
  6. AZILECT [Suspect]
     Active Substance: RASAGILINE MESYLATE
     Indication: PARKINSON^S DISEASE
     Dates: start: 2014
  7. MAGNESIUM [Concomitant]
     Active Substance: MAGNESIUM
  8. ATORVASTATIN [Concomitant]
     Active Substance: ATORVASTATIN
  9. AMLODIPINE [Concomitant]
     Active Substance: AMLODIPINE BESYLATE
  10. VITAMIN D [Concomitant]
     Active Substance: CHOLECALCIFEROL
  11. DOCUSATE [Concomitant]
     Active Substance: DOCUSATE
  12. AMANTADINE [Concomitant]
     Active Substance: AMANTADINE
  13. DONEPEZIL. [Concomitant]
     Active Substance: DONEPEZIL

REACTIONS (2)
  - Gastrointestinal haemorrhage [Recovered/Resolved]
  - Diarrhoea [Not Recovered/Not Resolved]
